FAERS Safety Report 17160856 (Version 2)
Quarter: 2019Q4

REPORT INFORMATION
  Report Type: Spontaneous
  Country: CA (occurrence: CA)
  Receive Date: 20191216
  Receipt Date: 20191216
  Transmission Date: 20200122
  Serious: Yes (Death)
  Sender: FDA-Public Use
  Company Number: CA-B.BRAUN MEDICAL INC.-2077863

PATIENT
  Age: 23 Month
  Sex: Male

DRUGS (1)
  1. POTASSIUM CHLORIDE FOR INJECTION CONCENTRATE USP 0264-1940-20 (ANDA 08 [Suspect]
     Active Substance: POTASSIUM CHLORIDE
     Route: 042

REACTIONS (2)
  - Medication error [Not Recovered/Not Resolved]
  - Death [Fatal]
